FAERS Safety Report 25319968 (Version 2)
Quarter: 2025Q2

REPORT INFORMATION
  Report Type: Spontaneous
  Country: NL (occurrence: NL)
  Receive Date: 20250515
  Receipt Date: 20250606
  Transmission Date: 20250716
  Serious: Yes (Death)
  Sender: ABBVIE
  Company Number: None

PATIENT
  Age: 57 Year
  Sex: Male
  Weight: 90 kg

DRUGS (1)
  1. RINVOQ [Suspect]
     Active Substance: UPADACITINIB
     Indication: Colitis ulcerative
     Dosage: UPADACITINIB TABLET MGA 30MG / RINVOQ TABLET MVA 30MG, 1XDAY1
     Route: 048
     Dates: start: 20250124

REACTIONS (1)
  - Cardiac disorder [Fatal]
